FAERS Safety Report 9306178 (Version 1)
Quarter: 2013Q2

REPORT INFORMATION
  Report Type: Spontaneous
  Country: US (occurrence: US)
  Receive Date: 20130523
  Receipt Date: 20130523
  Transmission Date: 20140414
  Serious: Yes (Other)
  Sender: FDA-Public Use
  Company Number: US-GLAXOSMITHKLINE-A1023996A

PATIENT
  Age: 40 Year
  Sex: Female

DRUGS (3)
  1. POTIGA [Suspect]
     Indication: CONVULSION
     Dosage: 50MG TWICE PER DAY
     Route: 048
     Dates: start: 201303
  2. LAMICTAL [Suspect]
     Indication: CONVULSION
     Dosage: 200MG TWICE PER DAY
     Route: 048
     Dates: start: 2011
  3. LYRICA [Concomitant]

REACTIONS (2)
  - Convulsion [Unknown]
  - Fatigue [Recovering/Resolving]
